FAERS Safety Report 21141940 (Version 2)
Quarter: 2022Q3

REPORT INFORMATION
  Report Type: Spontaneous
  Country: US (occurrence: US)
  Receive Date: 20220728
  Receipt Date: 20220729
  Transmission Date: 20221027
  Serious: No
  Sender: FDA-Public Use
  Company Number: US-PFIZER INC-202201010784

PATIENT
  Sex: Female

DRUGS (1)
  1. PAXLOVID [Suspect]
     Active Substance: NIRMATRELVIR\RITONAVIR
     Indication: COVID-19 treatment
     Dosage: UNK

REACTIONS (6)
  - Diarrhoea [Unknown]
  - Yellow skin [Not Recovered/Not Resolved]
  - Pain [Unknown]
  - Liver disorder [Unknown]
  - Malaise [Unknown]
  - Product use issue [Unknown]
